FAERS Safety Report 21824370 (Version 1)
Quarter: 2023Q1

REPORT INFORMATION
  Report Type: Spontaneous
  Country: US (occurrence: US)
  Receive Date: 20230105
  Receipt Date: 20230105
  Transmission Date: 20230418
  Serious: Yes (Hospitalization)
  Sender: FDA-Public Use
  Company Number: US-BRISTOL-MYERS SQUIBB COMPANY-2023-001801

PATIENT
  Age: 73 Year
  Sex: Male
  Weight: 107 kg

DRUGS (1)
  1. REVLIMID [Suspect]
     Active Substance: LENALIDOMIDE
     Indication: Plasma cell myeloma
     Dosage: FREQUENCY- 21D ON 7D OFF
     Route: 048
     Dates: start: 20221201, end: 20230103

REACTIONS (1)
  - COVID-19 [Recovering/Resolving]
